FAERS Safety Report 5005876-5 (Version None)
Quarter: 2006Q2

REPORT INFORMATION
  Report Type: 
  Country: None (occurrence: None)
  Receive Date: 20060515
  Receipt Date: 20060503
  Transmission Date: 20061013
  Serious: Yes (Other)
  Sender: FDA-Public Use
  Company Number: SUSI-2006-00432

PATIENT
  Age: 54 Year
  Sex: Male
  Weight: 99.8 kg

DRUGS (2)
  1. ADDERALL XR 30 [Suspect]
     Indication: ATTENTION DEFICIT/HYPERACTIVITY DISORDER
     Dosage: 20 MG, DAILY
     Dates: start: 20060301, end: 20060401
  2. ASPIRIN /00346701/ (ASCORBIC ACID, ACETYLSALICYLIC ACID) [Concomitant]

REACTIONS (3)
  - BLOOD PRESSURE INCREASED [None]
  - MACULOPATHY [None]
  - RETINOPATHY [None]
